FAERS Safety Report 9956979 (Version 1)
Quarter: 2014Q1

REPORT INFORMATION
  Report Type: Spontaneous
  Country: US (occurrence: US)
  Receive Date: 20140304
  Receipt Date: 20140304
  Transmission Date: 20141002
  Serious: No
  Sender: FDA-Public Use
  Company Number: US-ABBVIE-13P-163-1097367-00

PATIENT
  Sex: Male

DRUGS (3)
  1. HUMIRA [Suspect]
     Indication: COLITIS ULCERATIVE
     Dosage: ONE DOSE
     Dates: start: 201305, end: 201305
  2. HUMIRA [Suspect]
     Dosage: TWO WEEKS AFTER 160MG DOSE
     Dates: start: 201305, end: 201305
  3. HUMIRA [Suspect]
     Dosage: FOUR WEEKS AFTER 160MG DOSE
     Dates: start: 201305, end: 201305

REACTIONS (1)
  - Incorrect dose administered [Not Recovered/Not Resolved]
